FAERS Safety Report 18556636 (Version 1)
Quarter: 2020Q4

REPORT INFORMATION
  Report Type: Spontaneous
  Country: US (occurrence: US)
  Receive Date: 20201128
  Receipt Date: 20201128
  Transmission Date: 20210114
  Serious: Yes (Other)
  Sender: FDA-Public Use
  Company Number: US-009507513-2011USA015462

PATIENT
  Age: 52 Year
  Sex: Female
  Weight: 63.5 kg

DRUGS (2)
  1. PRINIVIL [Suspect]
     Active Substance: LISINOPRIL
     Indication: HYPERTENSION
     Dosage: 5 MILLIGRAM, QD
     Route: 048
     Dates: start: 200911, end: 201005
  2. PRINIVIL [Suspect]
     Active Substance: LISINOPRIL
     Dosage: 5 MILLIGRAM, QD
     Route: 048

REACTIONS (13)
  - Insomnia [Recovering/Resolving]
  - Restless legs syndrome [Recovering/Resolving]
  - Stevens-Johnson syndrome [Recovering/Resolving]
  - Myalgia [Recovering/Resolving]
  - Crying [Unknown]
  - Pharyngeal swelling [Recovering/Resolving]
  - Generalised oedema [Recovering/Resolving]
  - Alopecia [Recovering/Resolving]
  - Palpitations [Recovered/Resolved]
  - Self esteem decreased [Unknown]
  - Muscle spasms [Recovering/Resolving]
  - Weight increased [Recovering/Resolving]
  - Restlessness [Recovering/Resolving]

NARRATIVE: CASE EVENT DATE: 200911
